FAERS Safety Report 7787534-7 (Version None)
Quarter: 2011Q3

REPORT INFORMATION
  Report Type: 
  Country: None (occurrence: None)
  Receive Date: 20110929
  Receipt Date: 20110923
  Transmission Date: 20111222
  Serious: Yes (Hospitalization, Other)
  Sender: FDA-Public Use
  Company Number: US-AMGEN-KDL416687

PATIENT
  Age: 67 Year
  Sex: Male

DRUGS (3)
  1. METHOTREXATE [Concomitant]
     Dosage: UNK
  2. ENBREL [Suspect]
     Indication: RHEUMATOID ARTHRITIS
     Dosage: 50 MG, QWK
     Dates: start: 20020101, end: 20101001
  3. ENBREL [Suspect]
     Dosage: 50 MG, QWK
     Route: 058

REACTIONS (7)
  - LYMPHOMA [None]
  - MYOCARDIAL INFARCTION [None]
  - RHEUMATOID LUNG [None]
  - BLOOD COUNT ABNORMAL [None]
  - RHEUMATOID ARTHRITIS [None]
  - CARDIAC ARREST [None]
  - HOSPITALISATION [None]
